FAERS Safety Report 6779366-3 (Version None)
Quarter: 2010Q2

REPORT INFORMATION
  Report Type: 
  Country: None (occurrence: None)
  Receive Date: 20100618
  Receipt Date: 20100610
  Transmission Date: 20101027
  Serious: Yes (Hospitalization)
  Sender: FDA-Public Use
  Company Number: PHHO2009FR14662

PATIENT
  Weight: 53 kg

DRUGS (9)
  1. ZOLEDRONATE T29581+SOLINJ+BM [Suspect]
     Indication: BONE SARCOMA
     Dosage: 4 MG, UNK
     Route: 042
     Dates: start: 20090528
  2. ZOLEDRONATE T29581+SOLINJ+BM [Suspect]
     Dosage: 4 MG
     Route: 042
     Dates: start: 20091104
  3. CALCIUM CARBONATE [Concomitant]
  4. VITAMIN D [Concomitant]
  5. METHOTREXATE [Concomitant]
     Dosage: UNK
     Dates: start: 20090525
  6. ADRIAMYCIN PFS [Concomitant]
     Dosage: UNK
     Dates: start: 20090929
  7. CISPLATIN [Concomitant]
     Dosage: UNK
     Dates: start: 20090615
  8. IFOSFAMIDE [Concomitant]
     Dosage: UNK
     Dates: start: 20090615
  9. ETOPOSIDE [Concomitant]
     Dosage: UNK
     Dates: start: 20090528

REACTIONS (8)
  - ENTEROCOCCAL INFECTION [None]
  - NEUTROPENIA [None]
  - POSTOPERATIVE WOUND COMPLICATION [None]
  - POSTOPERATIVE WOUND INFECTION [None]
  - PURULENT DISCHARGE [None]
  - PYREXIA [None]
  - STAPHYLOCOCCAL INFECTION [None]
  - WOUND CLOSURE [None]
